FAERS Safety Report 17534394 (Version 1)
Quarter: 2020Q1

REPORT INFORMATION
  Report Type: Report from Study
  Country: GB (occurrence: GB)
  Receive Date: 20200312
  Receipt Date: 20200312
  Transmission Date: 20200409
  Serious: Yes (Other)
  Sender: FDA-Public Use
  Company Number: GB-CASPER PHARMA LLC-2020CAS000120

PATIENT

DRUGS (1)
  1. BISMUTH, METRONIDAZOLE, TETRACYCLIN [Suspect]
     Active Substance: BISMUTH SUBSALICYLATE\METRONIDAZOLE\TETRACYCLINE HYDROCHLORIDE
     Indication: GASTROINTESTINAL INFECTION
     Dosage: UNK
     Route: 065

REACTIONS (1)
  - Acute hepatic failure [Recovered/Resolved]
